FAERS Safety Report 8525844-6 (Version None)
Quarter: 2012Q3

REPORT INFORMATION
  Report Type: 
  Country: None (occurrence: None)
  Receive Date: 20120720
  Receipt Date: 20120717
  Transmission Date: 20120928
  Serious: Yes (Life-Threatening, Other)
  Sender: FDA-Public Use
  Company Number: CO-ELI_LILLY_AND_COMPANY-CO201207006069

PATIENT
  Age: 77 Year
  Sex: Female

DRUGS (7)
  1. ACETAMINOPHEN [Concomitant]
  2. CALCIUM CARBONATE + VITAMIN D [Concomitant]
  3. THEOPHYLLINE [Concomitant]
  4. CALCIUM + VITAMIN D [Concomitant]
  5. TRAMADOL HYDROCHLORIDE [Concomitant]
     Dosage: UNK
  6. RANITIDINE [Concomitant]
  7. FORTEO [Suspect]
     Dosage: 20 UG, QD

REACTIONS (3)
  - VOMITING [None]
  - NAUSEA [None]
  - ASPHYXIA [None]
